FAERS Safety Report 10145379 (Version 1)
Quarter: 2014Q2

REPORT INFORMATION
  Report Type: Spontaneous
  Country: US (occurrence: US)
  Receive Date: 20140501
  Receipt Date: 20140501
  Transmission Date: 20141212
  Serious: No
  Sender: FDA-Public Use
  Company Number: US-BIOGENIDEC-2014BI037907

PATIENT
  Sex: Male

DRUGS (1)
  1. TECFIDERA [Suspect]
     Indication: PRODUCT USED FOR UNKNOWN INDICATION
     Dates: start: 20131001

REACTIONS (4)
  - Memory impairment [Unknown]
  - Balance disorder [Unknown]
  - Drug effect incomplete [Unknown]
  - Multiple sclerosis relapse [Unknown]
